FAERS Safety Report 10306117 (Version 1)
Quarter: 2014Q3

REPORT INFORMATION
  Report Type: Spontaneous
  Country: NL (occurrence: NL)
  Receive Date: 20140715
  Receipt Date: 20140715
  Transmission Date: 20150326
  Serious: Yes (Other)
  Sender: FDA-Public Use
  Company Number: NL-TEVA-493176ISR

PATIENT
  Age: 29 Year
  Sex: Female

DRUGS (2)
  1. INDOMETACINE CAPSULE MGA 75MG [Suspect]
     Active Substance: INDOMETHACIN
     Indication: TRIGEMINAL NEURALGIA
     Dosage: 75 MILLIGRAM DAILY;
     Route: 048
     Dates: start: 20140331, end: 20140620
  2. TRUVADA [Interacting]
     Active Substance: EMTRICITABINE\TENOFOVIR DISOPROXIL FUMARATE
     Indication: HIV INFECTION
     Dosage: 1 DOSAGE FORMS DAILY;
     Route: 048
     Dates: start: 2012

REACTIONS (2)
  - Renal impairment [Unknown]
  - Drug interaction [Unknown]

NARRATIVE: CASE EVENT DATE: 20140605
